FAERS Safety Report 7199678-1 (Version None)
Quarter: 2010Q4

REPORT INFORMATION
  Report Type: 
  Country: None (occurrence: None)
  Receive Date: 20101228
  Receipt Date: 20101216
  Transmission Date: 20110411
  Serious: Yes (Hospitalization, Other)
  Sender: FDA-Public Use
  Company Number: US-ELI_LILLY_AND_COMPANY-US201008007267

PATIENT
  Sex: Female

DRUGS (4)
  1. FORTEO [Suspect]
     Indication: OSTEOPOROSIS
     Dosage: 20 UG, DAILY (1/D)
     Dates: start: 20090501
  2. FORTEO [Suspect]
     Dosage: 20 UG, DAILY (1/D)
  3. PRAMIPEXOLE [Concomitant]
  4. CARBIDOPA [Concomitant]

REACTIONS (10)
  - ANAEMIA [None]
  - ARTHRALGIA [None]
  - ASTHENIA [None]
  - HIP ARTHROPLASTY [None]
  - KNEE ARTHROPLASTY [None]
  - OSTEOARTHRITIS [None]
  - POST PROCEDURAL COMPLICATION [None]
  - POST PROCEDURAL DISCOMFORT [None]
  - POST PROCEDURAL INFECTION [None]
  - POSTOPERATIVE WOUND INFECTION [None]
